FAERS Safety Report 8732452 (Version 1)
Quarter: 2012Q4

REPORT INFORMATION
  Report Type: 
  Country: US (occurrence: US)
  Receive Date: 20120912
  Receipt Date: 20120912
  Transmission Date: 20130627
  Serious: Yes (Hospitalization)
  Sender: FDA-Public Use
  Company Number: US-ROCHE-1099824

PATIENT
  Age: 50 Year
  Sex: Male

DRUGS (5)
  1. ACTIVASE [Suspect]
     Indication: ACUTE MYOCARDIAL INFARCTION
     Route: 065
     Dates: start: 19901118
  2. ACTIVASE [Suspect]
     Route: 065
     Dates: start: 19901118
  3. TENORMIN [Concomitant]
  4. ASPIRIN [Concomitant]
  5. HEPARINE [Concomitant]

REACTIONS (13)
  - Chest pain [Unknown]
  - Nausea [Unknown]
  - Vomiting [Unknown]
  - Haematemesis [Unknown]
  - Hypotension [Unknown]
  - Petechiae [Unknown]
  - Purpura [Unknown]
  - Ventricular extrasystoles [Unknown]
  - Haematuria [Unknown]
  - Chest discomfort [Unknown]
  - Cardiomegaly [Unknown]
  - Pulmonary oedema [Unknown]
  - Oxygen saturation decreased [Unknown]
